FAERS Safety Report 21812432 (Version 1)
Quarter: 2023Q1

REPORT INFORMATION
  Report Type: Spontaneous
  Country: DE (occurrence: DE)
  Receive Date: 20230103
  Receipt Date: 20230103
  Transmission Date: 20230418
  Serious: Yes (Other)
  Sender: FDA-Public Use
  Company Number: DE-BAYER-2017-012842

PATIENT
  Age: 16 Year
  Sex: Male

DRUGS (6)
  1. SORAFENIB [Suspect]
     Active Substance: SORAFENIB
     Indication: Acute myeloid leukaemia
     Dosage: 200 MG/M2, QD
  2. CYTARABINE [Suspect]
     Active Substance: CYTARABINE
     Dosage: UNK
     Route: 037
  3. CYTARABINE [Suspect]
     Active Substance: CYTARABINE
     Dosage: UNK
     Route: 042
  4. FLUDARABINE [Suspect]
     Active Substance: FLUDARABINE PHOSPHATE
  5. METHOTREXATE [Suspect]
     Active Substance: METHOTREXATE
  6. PREDNISOLONE [Suspect]
     Active Substance: PREDNISOLONE

REACTIONS (11)
  - Tumour lysis syndrome [None]
  - Respiratory syncytial virus infection [None]
  - Thrombocytopenia [None]
  - Palmar-plantar erythrodysaesthesia syndrome [None]
  - Pyrexia [None]
  - C-reactive protein increased [None]
  - Oxygen saturation decreased [None]
  - Aspartate aminotransferase increased [None]
  - Blood lactate dehydrogenase increased [None]
  - Off label use [None]
  - Anaemia [None]
